FAERS Safety Report 9019643 (Version 1)
Quarter: 2013Q1

REPORT INFORMATION
  Report Type: Spontaneous
  Country: US (occurrence: US)
  Receive Date: 20130118
  Receipt Date: 20130118
  Transmission Date: 20140127
  Serious: Yes (Other)
  Sender: FDA-Public Use
  Company Number: US-BRISTOL-MYERS SQUIBB COMPANY-16859548

PATIENT
  Age: 8 Year
  Sex: Male
  Weight: 27.21 kg

DRUGS (1)
  1. ABILIFY ORAL SOLUTION [Suspect]
     Indication: AUTISM
     Dosage: 13AUG12-14AUG12:45 MG, PRESCRIBED DOSE: 9ML(9MG)/DAILY,RESUMED FROM 15AUG12.
     Dates: start: 20120813

REACTIONS (1)
  - Accidental overdose [Unknown]
